FAERS Safety Report 24994399 (Version 1)
Quarter: 2025Q1

REPORT INFORMATION
  Report Type: Spontaneous
  Country: IN (occurrence: IN)
  Receive Date: 20250221
  Receipt Date: 20250221
  Transmission Date: 20250409
  Serious: Yes (Other)
  Sender: ASPIRO PHARMA
  Company Number: IN-AMAROX PHARMA-HET2025IN00722

PATIENT
  Age: 25 Year
  Sex: Male

DRUGS (1)
  1. OLANZAPINE [Suspect]
     Active Substance: OLANZAPINE
     Indication: Manic symptom
     Route: 065

REACTIONS (1)
  - Oculogyric crisis [Recovering/Resolving]
